FAERS Safety Report 18452787 (Version 3)
Quarter: 2022Q3

REPORT INFORMATION
  Report Type: Report from Study
  Country: CA (occurrence: CA)
  Receive Date: 20201102
  Receipt Date: 20220711
  Transmission Date: 20221026
  Serious: Yes (Hospitalization)
  Sender: FDA-Public Use
  Company Number: CA-GLAXOSMITHKLINE-CA2020AMR213620

PATIENT

DRUGS (1)
  1. MEPOLIZUMAB [Suspect]
     Active Substance: MEPOLIZUMAB
     Indication: Asthma
     Dosage: 100 MG, Z, MONTHLY
     Route: 042
     Dates: start: 20200316

REACTIONS (5)
  - Malaise [Unknown]
  - Campylobacter infection [Recovering/Resolving]
  - Dehydration [Recovering/Resolving]
  - Food poisoning [Recovering/Resolving]
  - Bedridden [Unknown]
